FAERS Safety Report 4877198-4 (Version None)
Quarter: 2005Q4

REPORT INFORMATION
  Report Type: 
  Country: None (occurrence: None)
  Receive Date: 20051206
  Receipt Date: 20050922
  Transmission Date: 20060501
  Serious: No
  Sender: FDA-Public Use
  Company Number: USA0508109173

PATIENT
  Age: 55 Year
  Sex: Female

DRUGS (1)
  1. CYMBALTA [Suspect]
     Dosage: 20 MG

REACTIONS (2)
  - HYPOACUSIS [None]
  - TINNITUS [None]
